FAERS Safety Report 4493848-9 (Version None)
Quarter: 2004Q4

REPORT INFORMATION
  Report Type: 
  Country: None (occurrence: None)
  Receive Date: 20041103
  Receipt Date: 20041103
  Transmission Date: 20050328
  Serious: Yes (Hospitalization)
  Sender: FDA-Public Use
  Company Number: None

PATIENT
  Age: 61 Year
  Sex: Female
  Weight: 46 kg

DRUGS (2)
  1. IRESSA [Suspect]
     Indication: PANCREATIC CARCINOMA METASTATIC
     Dosage: 250 QD ORAL
     Route: 048
     Dates: start: 20040917, end: 20041102
  2. DOCETAXEL D1,D8 OF 21 DAY CYCLE [Suspect]
     Indication: PANCREATIC CARCINOMA METASTATIC
     Dosage: 40 IV
     Route: 042
     Dates: start: 20040917, end: 20041102

REACTIONS (3)
  - ABSCESS [None]
  - COMPUTERISED TOMOGRAM ABNORMAL [None]
  - SECRETION DISCHARGE [None]
